FAERS Safety Report 25032061 (Version 1)
Quarter: 2025Q1

REPORT INFORMATION
  Report Type: Spontaneous
  Country: US (occurrence: None)
  Receive Date: 20250303
  Receipt Date: 20250303
  Transmission Date: 20250408
  Serious: Yes (Hospitalization)
  Sender: FDA-CTU
  Company Number: None

PATIENT
  Age: 57 Year
  Sex: Female

DRUGS (3)
  1. TAVNEOS [Suspect]
     Active Substance: AVACOPAN
     Dosage: FREQUENCY : TWICE A DAY;?
     Route: 048
     Dates: start: 20250226
  2. RITUXIMAB [Suspect]
     Active Substance: RITUXIMAB
     Dates: start: 20250226
  3. PREDNISONE [Suspect]
     Active Substance: PREDNISONE

REACTIONS (4)
  - Fluid retention [None]
  - Dialysis [None]
  - Haemoptysis [None]
  - Pyrexia [None]

NARRATIVE: CASE EVENT DATE: 20250228
